FAERS Safety Report 8144472 (Version 7)
Quarter: 2013Q4

REPORT INFORMATION
  Report Type: Spontaneous
  Country: US (occurrence: US)
  Receive Date: 20110920
  Receipt Date: 20131115
  Transmission Date: 20140711
  Serious: Yes (Death, Hospitalization)
  Sender: FDA-Public Use
  Company Number: US-GLAXOSMITHKLINE-A0915574A

PATIENT
  Age: 84 Year
  Sex: Male

DRUGS (5)
  1. AVANDIA [Suspect]
     Indication: DIABETES MELLITUS
     Dosage: 4MG PER DAY
     Route: 048
     Dates: start: 200004, end: 200702
  2. DIGITEK [Concomitant]
  3. LIPITOR [Concomitant]
  4. ALBUTEROL [Concomitant]
  5. GLIPIZIDE [Concomitant]

REACTIONS (4)
  - Sudden cardiac death [Fatal]
  - Cardiac failure congestive [Unknown]
  - Cardiac disorder [Unknown]
  - Cardiovascular disorder [Unknown]
